FAERS Safety Report 10229810 (Version 1)
Quarter: 2014Q2

REPORT INFORMATION
  Report Type: Other
  Country: GB (occurrence: GB)
  Receive Date: 20140611
  Receipt Date: 20140611
  Transmission Date: 20141212
  Serious: Yes (Life-Threatening, Other)
  Sender: FDA-Public Use
  Company Number: GB-TAKEDA-2014TEU004793

PATIENT
  Age: 71 Year
  Sex: Male
  Weight: 89 kg

DRUGS (8)
  1. ACTOS [Suspect]
     Indication: DIABETES MELLITUS
     Dosage: 45 MG, UNK
     Dates: start: 20041129, end: 20140520
  2. ASPIRIN [Concomitant]
     Dosage: UNK
  3. CITALOPRAM [Concomitant]
     Dosage: UNK
  4. METFORMIN [Concomitant]
     Dosage: UNK
  5. OMEPRAZOLE [Concomitant]
     Dosage: UNK
  6. PROSTAP [Concomitant]
     Dosage: UNK
  7. REPAGLINIDE [Concomitant]
     Dosage: UNK
  8. TOLTERODINE [Concomitant]
     Dosage: UNK

REACTIONS (2)
  - Haematuria [Unknown]
  - Bladder adenocarcinoma stage unspecified [Unknown]
